FAERS Safety Report 12221761 (Version 1)
Quarter: 2016Q1

REPORT INFORMATION
  Report Type: Spontaneous
  Country: US (occurrence: US)
  Receive Date: 20160330
  Receipt Date: 20160330
  Transmission Date: 20160526
  Serious: No
  Sender: FDA-Public Use
  Company Number: US-MYLANLABS-2015M1005297

PATIENT
  Sex: Female

DRUGS (1)
  1. FENTANYL TRANSDERMAL SYSTEM [Suspect]
     Active Substance: FENTANYL
     Indication: PAIN
     Dosage: 75 ?G, QH, CHANGES Q 72H
     Route: 062
     Dates: start: 201409

REACTIONS (4)
  - Application site pruritus [Not Recovered/Not Resolved]
  - Application site dryness [Not Recovered/Not Resolved]
  - Application site discolouration [Not Recovered/Not Resolved]
  - Pain [Recovered/Resolved]

NARRATIVE: CASE EVENT DATE: 201409
